FAERS Safety Report 6114863-5 (Version None)
Quarter: 2009Q1

REPORT INFORMATION
  Report Type: 
  Country: None (occurrence: None)
  Receive Date: 20090311
  Receipt Date: 20080627
  Transmission Date: 20090719
  Serious: Yes (Death)
  Sender: FDA-Public Use
  Company Number: US200806006523

PATIENT
  Age: 60 Year
  Sex: Male

DRUGS (6)
  1. GEMZAR [Suspect]
     Indication: LUNG CANCER METASTATIC
  2. ALIMTA [Suspect]
     Indication: LUNG CANCER METASTATIC
  3. PACLITAXEL [Concomitant]
  4. CARBOPLATIN [Concomitant]
  5. DOCETAXEL [Concomitant]
  6. VINORELBINE TARTRATE [Concomitant]

REACTIONS (2)
  - ANAEMIA OF MALIGNANT DISEASE [None]
  - MALIGNANT NEOPLASM PROGRESSION [None]
